FAERS Safety Report 9318435 (Version 1)
Quarter: 2013Q2

REPORT INFORMATION
  Report Type: Spontaneous
  Country: US (occurrence: US)
  Receive Date: 20130530
  Receipt Date: 20130530
  Transmission Date: 20140414
  Serious: No
  Sender: FDA-Public Use
  Company Number: US-NOVEN-12US005566

PATIENT
  Age: 6 Year
  Sex: Male

DRUGS (2)
  1. DAYTRANA [Suspect]
     Indication: ATTENTION DEFICIT/HYPERACTIVITY DISORDER
     Dosage: 10 MG, QD
     Route: 062
     Dates: start: 20121017, end: 20121018
  2. NASONEX [Concomitant]
     Indication: SEASONAL ALLERGY
     Dosage: 1 PUFF EACH NOSTRIL
     Route: 055

REACTIONS (1)
  - Nausea [Not Recovered/Not Resolved]
